FAERS Safety Report 7472831-5 (Version None)
Quarter: 2011Q2

REPORT INFORMATION
  Report Type: 
  Country: None (occurrence: None)
  Receive Date: 20110503
  Receipt Date: 20110419
  Transmission Date: 20111010
  Serious: Yes (Hospitalization, Other)
  Sender: FDA-Public Use
  Company Number: 2011SP017784

PATIENT
  Sex: Male
  Weight: 118 kg

DRUGS (2)
  1. INTEGRILIN [Suspect]
     Indication: ACUTE MYOCARDIAL INFARCTION
     Dosage: 17 GTT;QH;IV
     Route: 042
  2. HEPARIN [Concomitant]

REACTIONS (3)
  - INCORRECT DRUG ADMINISTRATION RATE [None]
  - THROMBOSIS IN DEVICE [None]
  - OFF LABEL USE [None]
